FAERS Safety Report 11062590 (Version 2)
Quarter: 2016Q2

REPORT INFORMATION
  Report Type: Spontaneous
  Country: SE (occurrence: SE)
  Receive Date: 20150424
  Receipt Date: 20160414
  Transmission Date: 20160815
  Serious: Yes (Other)
  Sender: FDA-Public Use
  Company Number: SE-SA-2015SA052234

PATIENT
  Age: 84 Year
  Sex: Male

DRUGS (1)
  1. CLOPIDOGREL BISULFATE. [Suspect]
     Active Substance: CLOPIDOGREL BISULFATE
     Indication: TRANSIENT ISCHAEMIC ATTACK
     Route: 048
     Dates: start: 20141104, end: 20141125

REACTIONS (4)
  - Confusional state [Recovered/Resolved]
  - Anxiety [Recovered/Resolved]
  - Personality change [Recovered/Resolved]
  - Paranoia [Recovered/Resolved]

NARRATIVE: CASE EVENT DATE: 20141114
